FAERS Safety Report 4957175-5 (Version None)
Quarter: 2006Q1

REPORT INFORMATION
  Report Type: 
  Country: None (occurrence: None)
  Receive Date: 20060323
  Receipt Date: 20060306
  Transmission Date: 20060701
  Serious: No
  Sender: FDA-Public Use
  Company Number: US_0508120787

PATIENT
  Age: 32 Year
  Sex: Female

DRUGS (2)
  1. ZYPREXA [Suspect]
     Indication: BIPOLAR DISORDER
     Dosage: 2.5 MG ORAL
     Route: 048
     Dates: start: 20030225
  2. PRENATAL VITAMINS [Concomitant]

REACTIONS (5)
  - DISEASE RECURRENCE [None]
  - DRUG EXPOSURE DURING PREGNANCY [None]
  - GESTATIONAL DIABETES [None]
  - POSTPARTUM HAEMORRHAGE [None]
  - PREGNANCY [None]
